FAERS Safety Report 7931125-1 (Version None)
Quarter: 2011Q4

REPORT INFORMATION
  Report Type: 
  Country: None (occurrence: None)
  Receive Date: 20111121
  Receipt Date: 20111111
  Transmission Date: 20120403
  Serious: Yes (Hospitalization)
  Sender: FDA-Public Use
  Company Number: ES-ABBOTT-11P-144-0873999-00

PATIENT
  Age: 33 Year
  Sex: Female

DRUGS (5)
  1. CALCIUM D3 [Concomitant]
     Indication: OSTEOPOROSIS PROPHYLAXIS
     Dosage: 3000MG/800 UI, 1 IN 1 D
     Dates: start: 20110131
  2. HUMIRA [Suspect]
     Indication: CROHN'S DISEASE
     Route: 058
     Dates: end: 20110110
  3. INFLIXIMAB [Concomitant]
     Indication: CROHN'S DISEASE
     Dates: start: 20110323, end: 20110629
  4. PREDNISONE [Concomitant]
     Indication: CROHN'S DISEASE
     Dates: start: 20110131, end: 20110309
  5. IMMUNOSUPPRESSANTS [Concomitant]
     Indication: PRODUCT USED FOR UNKNOWN INDICATION

REACTIONS (1)
  - CROHN'S DISEASE [None]
